FAERS Safety Report 8077332-1 (Version None)
Quarter: 2012Q1

REPORT INFORMATION
  Report Type: 
  Country: None (occurrence: None)
  Receive Date: 20120127
  Receipt Date: 20120125
  Transmission Date: 20120608
  Serious: No
  Sender: FDA-Public Use
  Company Number: US-PFIZER INC-2012022026

PATIENT
  Sex: Female
  Weight: 65.306 kg

DRUGS (15)
  1. METFORMIN HYDROCHLORIDE [Concomitant]
     Indication: DIABETES MELLITUS
     Dosage: 500 MG, 3X/DAY
  2. POTASSIUM [Concomitant]
     Indication: PROPHYLAXIS
     Dosage: 10 MG, DAILY
  3. MULTI-VITAMINS [Concomitant]
     Dosage: UNK, DAILY
  4. ASPIRIN [Concomitant]
     Indication: CARDIAC DISORDER
     Dosage: 81 MG, DAILY
  5. WARFARIN SODIUM [Concomitant]
     Indication: ANTICOAGULANT THERAPY
     Dosage: 4 MG, DAILY
  6. LASIX [Concomitant]
     Indication: OEDEMA PERIPHERAL
     Dosage: 80 MG, 2X/DAY
  7. DILTIAZEM [Concomitant]
     Indication: CARDIAC DISORDER
     Dosage: 180 MG, DAILY
  8. ISOSORBIDE MONONITRATE [Concomitant]
     Indication: CARDIAC DISORDER
     Dosage: 60 MG, 2X/DAY
  9. LYRICA [Concomitant]
     Indication: NEURALGIA
  10. CHANTIX [Suspect]
     Indication: SMOKING CESSATION THERAPY
     Dosage: 0.5 MG, DAILY
     Route: 048
     Dates: start: 20111226
  11. CHANTIX [Suspect]
     Dosage: 1 MG, 2X/DAY
     Dates: end: 20120101
  12. LYRICA [Concomitant]
     Indication: NEUROPATHY PERIPHERAL
     Dosage: 150 MG, 2X/DAY
  13. OXYCONTIN [Concomitant]
     Indication: NEURALGIA
     Dosage: 20 MG, 2X/DAY
  14. METOPROLOL [Concomitant]
     Indication: HEART RATE INCREASED
     Dosage: 75 MG, 2X/DAY
  15. PRILOSEC [Concomitant]
     Indication: GASTRIC DISORDER
     Dosage: UNK, DAILY

REACTIONS (2)
  - NAUSEA [None]
  - VOMITING [None]
